FAERS Safety Report 12445226 (Version 1)
Quarter: 2016Q2

REPORT INFORMATION
  Report Type: Report from Study
  Country: BR (occurrence: BR)
  Receive Date: 20160607
  Receipt Date: 20160607
  Transmission Date: 20160815
  Serious: Yes (Other)
  Sender: FDA-Public Use
  Company Number: ALCN2016BR003260

PATIENT
  Sex: Male
  Weight: 70 kg

DRUGS (2)
  1. TRAVATAN Z [Suspect]
     Active Substance: TRAVOPROST
     Indication: INTRAOCULAR PRESSURE INCREASED
     Dosage: 2 GTT, QHS
     Route: 047
     Dates: end: 2015
  2. DUOTRAV BAC-FREE [Suspect]
     Active Substance: TIMOLOL\TRAVOPROST
     Indication: INTRAOCULAR PRESSURE INCREASED
     Dosage: 1 GTT, QHS
     Route: 047

REACTIONS (3)
  - Drug ineffective [Recovered/Resolved]
  - Off label use [Unknown]
  - Cataract [Recovered/Resolved]
